FAERS Safety Report 7681269-7 (Version None)
Quarter: 2011Q3

REPORT INFORMATION
  Report Type: 
  Country: None (occurrence: None)
  Receive Date: 20110804
  Receipt Date: 20110722
  Transmission Date: 20111222
  Serious: Yes (Death)
  Sender: FDA-Public Use
  Company Number: KR-JNJFOC-20110607529

PATIENT
  Age: 53 Year
  Sex: Male
  Weight: 76.2 kg

DRUGS (7)
  1. TRAMADOL-ER (TRAMADOL HYDROCHLORIDE) SUSTAINED RELEASE TABLETS [Concomitant]
  2. CHLORPHENIRAMINE (CHLORPHENAMINE) INJECTION [Concomitant]
  3. KCL (POTASSIUM CHLORIDE) POWDER [Concomitant]
  4. TRAMADOL (TRAMADOL HYDROCHLORIDE) SUSTAINED RELEASE TABLETS [Concomitant]
  5. DACOGEN [Suspect]
     Indication: MYELODYSPLASTIC SYNDROME
     Dosage: 20 MG/M2, 1 IN 1 DAY, INTRAVENOUS  20MG/M2, 1 IN 1 DAY, INTRAVENOUS
     Route: 042
     Dates: start: 20110613, end: 20110615
  6. DACOGEN [Suspect]
     Indication: MYELODYSPLASTIC SYNDROME
     Dosage: 20 MG/M2, 1 IN 1 DAY, INTRAVENOUS  20MG/M2, 1 IN 1 DAY, INTRAVENOUS
     Route: 042
     Dates: start: 20110516, end: 20110520
  7. HEXOMEDINE (HEXOMEDINE /01587901/) SOLUTION [Concomitant]

REACTIONS (5)
  - CONDITION AGGRAVATED [None]
  - MYELODYSPLASTIC SYNDROME [None]
  - CACHEXIA [None]
  - COLD SWEAT [None]
  - DYSPNOEA [None]
